FAERS Safety Report 10463720 (Version 8)
Quarter: 2015Q2

REPORT INFORMATION
  Report Type: Report from Study
  Country: CA (occurrence: CA)
  Receive Date: 20140919
  Receipt Date: 20150620
  Transmission Date: 20150821
  Serious: Yes (Death, Hospitalization, Other)
  Sender: FDA-Public Use
  Company Number: PHHY2014CA118586

PATIENT
  Age: 55 Year
  Sex: Female

DRUGS (2)
  1. SANDOSTATIN LAR DEPOT [Suspect]
     Active Substance: OCTREOTIDE ACETATE
     Indication: PSEUDOMYXOMA PERITONEI
  2. SANDOSTATIN LAR DEPOT [Suspect]
     Active Substance: OCTREOTIDE ACETATE
     Indication: CARCINOID TUMOUR OF THE SMALL BOWEL
     Dosage: 20 MG, EVERY 4 WEEKS
     Route: 030
     Dates: start: 20140815, end: 20150520

REACTIONS (13)
  - Abdominal pain [Unknown]
  - Pain [Unknown]
  - Body temperature increased [Unknown]
  - Alopecia [Unknown]
  - Death [Fatal]
  - Cholangitis [Unknown]
  - Jaundice [Recovering/Resolving]
  - Liver abscess [Unknown]
  - Off label use [Unknown]
  - Parotitis [Recovered/Resolved]
  - Infection [Unknown]
  - Blood pressure decreased [Unknown]
  - Hypoaesthesia oral [Unknown]

NARRATIVE: CASE EVENT DATE: 20140829
